FAERS Safety Report 18152502 (Version 2)
Quarter: 2020Q3

REPORT INFORMATION
  Report Type: Report from Study
  Country: CN (occurrence: CN)
  Receive Date: 20200814
  Receipt Date: 20200828
  Transmission Date: 20201103
  Serious: Yes (Hospitalization)
  Sender: FDA-Public Use
  Company Number: CN-EISAI MEDICAL RESEARCH-EC-2020-078947

PATIENT
  Age: 58 Year
  Sex: Male
  Weight: 58 kg

DRUGS (6)
  1. RABEPRAZOLE SODIUM. [Concomitant]
     Active Substance: RABEPRAZOLE SODIUM
     Dates: start: 20200630
  2. LENVATINIB [Suspect]
     Active Substance: LENVATINIB
     Indication: HEPATOCELLULAR CARCINOMA
     Route: 048
     Dates: start: 20191126
  3. ENTECAVIR. [Concomitant]
     Active Substance: ENTECAVIR
     Dates: start: 201412
  4. NITRENDIPINE [Concomitant]
     Active Substance: NITRENDIPINE
     Dates: start: 20200407
  5. PLACEBO [Suspect]
     Active Substance: UNSPECIFIED INGREDIENT
     Indication: HEPATOCELLULAR CARCINOMA
     Route: 041
     Dates: start: 20191126, end: 20200630
  6. PLACEBO [Suspect]
     Active Substance: UNSPECIFIED INGREDIENT
     Route: 041
     Dates: start: 20200723, end: 20200723

REACTIONS (2)
  - Foreign body in gastrointestinal tract [Recovering/Resolving]
  - Small intestinal ulcer perforation [Recovering/Resolving]

NARRATIVE: CASE EVENT DATE: 20200803
